FAERS Safety Report 15393253 (Version 1)
Quarter: 2018Q3

REPORT INFORMATION
  Report Type: Other
  Country: US (occurrence: US)
  Receive Date: 20180917
  Receipt Date: 20180917
  Transmission Date: 20181010
  Serious: No
  Sender: FDA-Public Use
  Company Number: US-LEADIANT BIOSCIENCES INC-2017STPI000592

PATIENT
  Sex: Male

DRUGS (12)
  1. GABITRIL [Concomitant]
     Active Substance: TIAGABINE HYDROCHLORIDE
  2. LOMUSTINE. [Concomitant]
     Active Substance: LOMUSTINE
  3. TRILEPTAL [Concomitant]
     Active Substance: OXCARBAZEPINE
  4. VINCRISTINE [Concomitant]
     Active Substance: VINCRISTINE
  5. ASPIRIN                            /00002701/ [Concomitant]
     Active Substance: ASPIRIN
  6. CAPTOPRIL. [Concomitant]
     Active Substance: CAPTOPRIL
  7. MATULANE [Suspect]
     Active Substance: PROCARBAZINE HYDROCHLORIDE
     Indication: BRAIN NEOPLASM MALIGNANT
     Dosage: 150 MG, DAILY
     Route: 048
     Dates: start: 20170112
  8. KEPPRA [Concomitant]
     Active Substance: LEVETIRACETAM
  9. LIPITOR [Concomitant]
     Active Substance: ATORVASTATIN CALCIUM
  10. TRANXENE [Concomitant]
     Active Substance: CLORAZEPATE DIPOTASSIUM
  11. ZOFRAN [Concomitant]
     Active Substance: ONDANSETRON HYDROCHLORIDE
  12. DYAZIDE [Concomitant]
     Active Substance: HYDROCHLOROTHIAZIDE\TRIAMTERENE

REACTIONS (1)
  - Decreased appetite [Not Recovered/Not Resolved]
